FAERS Safety Report 14502792 (Version 2)
Quarter: 2018Q1

REPORT INFORMATION
  Report Type: Report from Study
  Country: NL (occurrence: NL)
  Receive Date: 20180208
  Receipt Date: 20180209
  Transmission Date: 20180509
  Serious: Yes (Hospitalization)
  Sender: FDA-Public Use
  Company Number: NL-ROCHE-2065506

PATIENT
  Age: 64 Year
  Sex: Female
  Weight: 56.8 kg

DRUGS (2)
  1. CODEINE [Concomitant]
     Active Substance: CODEINE
     Route: 065
     Dates: start: 20180105
  2. ATEZOLIZUMAB. [Suspect]
     Active Substance: ATEZOLIZUMAB
     Indication: NEOPLASM
     Dosage: LAST DOSE PRIOR TO SAE: 05/JAN/2018
     Route: 042
     Dates: start: 20171124

REACTIONS (1)
  - Myasthenia gravis [Unknown]

NARRATIVE: CASE EVENT DATE: 20180126
